FAERS Safety Report 18691753 (Version 1)
Quarter: 2021Q1

REPORT INFORMATION
  Report Type: Other
  Country: FR (occurrence: FR)
  Receive Date: 20210102
  Receipt Date: 20210102
  Transmission Date: 20210419
  Serious: Yes (Death, Congenital Anomaly)
  Sender: FDA-Public Use
  Company Number: FR-CADILA HEALTHCARE LIMITED-FR-ZYDUS-060286

PATIENT

DRUGS (2)
  1. VENLAFAXINE [Suspect]
     Active Substance: VENLAFAXINE HYDROCHLORIDE
     Indication: MIXED ANXIETY AND DEPRESSIVE DISORDER
     Dosage: 150 MILLIGRAM, QD
     Route: 064
     Dates: start: 20200730, end: 20201007
  2. OXAZEPAM. [Suspect]
     Active Substance: OXAZEPAM
     Indication: MIXED ANXIETY AND DEPRESSIVE DISORDER
     Dosage: 20 MILLIGRAM, QD
     Route: 064
     Dates: start: 20200730, end: 20201007

REACTIONS (2)
  - Abortion induced [Fatal]
  - Congenital central nervous system anomaly [Fatal]

NARRATIVE: CASE EVENT DATE: 20201007
